FAERS Safety Report 6711173-X (Version None)
Quarter: 2010Q2

REPORT INFORMATION
  Report Type: 
  Country: None (occurrence: None)
  Receive Date: 20100505
  Receipt Date: 20100504
  Transmission Date: 20101027
  Serious: Yes (Death, Other)
  Sender: FDA-Public Use
  Company Number: US-PURDUE-USA-2010-0043396

PATIENT
  Age: 89 Year
  Sex: Male

DRUGS (1)
  1. OXYCONTIN [Suspect]
     Indication: DRUG USE FOR UNKNOWN INDICATION
     Dosage: 12 TABLET, SINGLE

REACTIONS (2)
  - HOMICIDE [None]
  - MULTIPLE DRUG OVERDOSE INTENTIONAL [None]
